FAERS Safety Report 11222438 (Version 1)
Quarter: 2015Q2

REPORT INFORMATION
  Report Type: Spontaneous
  Country: IT (occurrence: IT)
  Receive Date: 20150626
  Receipt Date: 20150626
  Transmission Date: 20150821
  Serious: Yes (Hospitalization)
  Sender: FDA-Public Use
  Company Number: IT-BRISTOL-MYERS SQUIBB COMPANY-BMS-2015-039683

PATIENT
  Age: 87 Year
  Sex: Male

DRUGS (3)
  1. LASIX [Concomitant]
     Active Substance: FUROSEMIDE
     Indication: CARDIAC FAILURE
     Route: 048
  2. CORDARONE [Concomitant]
     Active Substance: AMIODARONE HYDROCHLORIDE
     Indication: ATRIAL FIBRILLATION
     Route: 048
  3. COUMADIN [Suspect]
     Active Substance: WARFARIN SODIUM
     Indication: ATRIAL FIBRILLATION
     Route: 065

REACTIONS (2)
  - Haematoma [Recovering/Resolving]
  - Fall [Unknown]

NARRATIVE: CASE EVENT DATE: 20150509
